FAERS Safety Report 5234499-8 (Version None)
Quarter: 2007Q1

REPORT INFORMATION
  Report Type: 
  Country: None (occurrence: None)
  Receive Date: 20070208
  Receipt Date: 20070208
  Transmission Date: 20070707
  Serious: Yes (Other)
  Sender: FDA-Public Use
  Company Number: None

PATIENT
  Age: 81 Year
  Sex: Female
  Weight: 50.6 kg

DRUGS (2)
  1. MEPERIDINE AND ATROPINE SULFATE [Suspect]
     Indication: PAIN
     Dosage: 50MG 2 DOSES IV BOLUS
     Route: 042
     Dates: start: 20060607, end: 20060607
  2. CIPROFLOXACIN [Suspect]
     Indication: INFECTION
     Dosage: 400MG Q12H IV
     Route: 042
     Dates: start: 20060607, end: 20060607

REACTIONS (9)
  - ANXIETY [None]
  - BLOOD PRESSURE SYSTOLIC INCREASED [None]
  - BLOOD SODIUM DECREASED [None]
  - CONVULSION [None]
  - DYSPNOEA [None]
  - EYE ROLLING [None]
  - GAZE PALSY [None]
  - LOSS OF CONSCIOUSNESS [None]
  - TREMOR [None]
